FAERS Safety Report 6190962-7 (Version None)
Quarter: 2009Q2

REPORT INFORMATION
  Report Type: 
  Country: None (occurrence: None)
  Receive Date: 20090513
  Receipt Date: 20090501
  Transmission Date: 20091009
  Serious: Yes (Other)
  Sender: FDA-Public Use
  Company Number: 263928

PATIENT
  Age: 5 Year
  Sex: Male

DRUGS (2)
  1. MIDAZOLAM HYDROCHLORIDE [Suspect]
     Indication: SEDATION
     Dosage: 11.8 MG, RECTAL
     Route: 054
     Dates: start: 20090417, end: 20090417
  2. (AUGMENTTN PAEDIATRTC) [Concomitant]

REACTIONS (1)
  - PSYCHOMOTOR HYPERACTIVITY [None]
